FAERS Safety Report 20790142 (Version 1)
Quarter: 2022Q2

REPORT INFORMATION
  Report Type: Report from Study
  Country: MX (occurrence: MX)
  Receive Date: 20220505
  Receipt Date: 20220505
  Transmission Date: 20220721
  Serious: Yes (Hospitalization)
  Sender: FDA-Public Use
  Company Number: MX-NOVARTISPH-NVSC2022MX064227

PATIENT
  Age: 53 Year
  Sex: Female
  Weight: 64 kg

DRUGS (4)
  1. METFORMIN HYDROCHLORIDE\VILDAGLIPTIN [Suspect]
     Active Substance: METFORMIN HYDROCHLORIDE\VILDAGLIPTIN
     Indication: Blood glucose increased
     Dosage: 1 DOSAGE FORM, BID
     Route: 048
     Dates: start: 20210202
  2. METFORMIN HYDROCHLORIDE\VILDAGLIPTIN [Suspect]
     Active Substance: METFORMIN HYDROCHLORIDE\VILDAGLIPTIN
     Indication: Diabetes mellitus
     Dosage: 1 UNK (IN THE MORNING AND WITH THE MEAL)
     Route: 048
     Dates: start: 20220202
  3. PREGABALIN [Concomitant]
     Active Substance: PREGABALIN
     Indication: Pain
     Dosage: 1 DOSAGE FORM, QD
     Route: 048
     Dates: start: 202112
  4. NUCLEO CMP FORTE [Concomitant]
     Indication: Pain
     Dosage: 1 DOSAGE FORM, EVERY 8 HOURS
     Route: 048
     Dates: start: 202112

REACTIONS (3)
  - Intervertebral disc protrusion [Unknown]
  - Pain [Unknown]
  - Reflux gastritis [Recovering/Resolving]

NARRATIVE: CASE EVENT DATE: 20211001
